FAERS Safety Report 23391365 (Version 1)
Quarter: 2024Q1

REPORT INFORMATION
  Report Type: Spontaneous
  Country: PR (occurrence: None)
  Receive Date: 20240109
  Receipt Date: 20240109
  Transmission Date: 20240410
  Serious: Yes (Death)
  Sender: FDA-Public Use
  Company Number: None

PATIENT
  Age: 51 Year
  Sex: Male
  Weight: 98.88 kg

DRUGS (3)
  1. PROMACTA [Suspect]
     Active Substance: ELTROMBOPAG OLAMINE
     Indication: Thrombocytopenia
     Dosage: 25 MG DAILY ORAL?
     Route: 048
     Dates: start: 20230627, end: 20231003
  2. levETIRAcetam Oral Tablet 500 MG [Concomitant]
  3. Loratadine Oral Tablet 10 MG [Concomitant]

REACTIONS (2)
  - Platelet count decreased [None]
  - Death [None]
